FAERS Safety Report 15376610 (Version 2)
Quarter: 2018Q4

REPORT INFORMATION
  Report Type: Spontaneous
  Country: US (occurrence: US)
  Receive Date: 20180912
  Receipt Date: 20181109
  Transmission Date: 20190204
  Serious: No
  Sender: FDA-Public Use
  Company Number: US-BIOGEN-2018BI00628107

PATIENT
  Sex: Female

DRUGS (4)
  1. PLEGRIDY [Suspect]
     Active Substance: PEGINTERFERON BETA-1A
     Indication: MULTIPLE SCLEROSIS
     Route: 065
     Dates: start: 20180607, end: 201808
  2. LECITHIN [Concomitant]
     Active Substance: LECITHIN
     Route: 065
  3. AMBIEN [Concomitant]
     Active Substance: ZOLPIDEM TARTRATE
     Route: 065
  4. GABAPENTIN. [Concomitant]
     Active Substance: GABAPENTIN
     Route: 065

REACTIONS (16)
  - Drug intolerance [Recovered/Resolved]
  - Pain [Unknown]
  - Liver function test abnormal [Recovered/Resolved]
  - Dizziness [Unknown]
  - Upper limb fracture [Not Recovered/Not Resolved]
  - Anxiety [Not Recovered/Not Resolved]
  - Hepatic steatosis [Unknown]
  - Panic attack [Unknown]
  - Feeding disorder [Unknown]
  - Hepatic enzyme increased [Unknown]
  - Influenza like illness [Recovered/Resolved]
  - Vomiting [Recovered/Resolved]
  - Night sweats [Unknown]
  - Back pain [Unknown]
  - Malaise [Unknown]
  - Decreased appetite [Recovered/Resolved]
